FAERS Safety Report 16301083 (Version 1)
Quarter: 2019Q2

REPORT INFORMATION
  Report Type: Spontaneous
  Country: US (occurrence: US)
  Receive Date: 20190510
  Receipt Date: 20190510
  Transmission Date: 20190711
  Serious: No
  Sender: FDA-Public Use
  Company Number: US-ALKERMES INC.-ALK-2019-000271

PATIENT
  Age: 54 Year
  Sex: Female
  Weight: 52.15 kg

DRUGS (1)
  1. VIVITROL [Suspect]
     Active Substance: NALTREXONE
     Indication: ALCOHOLISM
     Dosage: 380 MG, QMO
     Route: 030
     Dates: start: 20190108

REACTIONS (11)
  - Feeling abnormal [Recovered/Resolved]
  - Depression [Recovered/Resolved]
  - Nasopharyngitis [Recovering/Resolving]
  - Dehydration [Recovering/Resolving]
  - Odynophagia [Recovering/Resolving]
  - Rhinorrhoea [Recovering/Resolving]
  - Hyperhidrosis [Recovering/Resolving]
  - Neck pain [Recovering/Resolving]
  - Mobility decreased [Recovering/Resolving]
  - Pain [Recovering/Resolving]
  - Feeling of despair [Recovered/Resolved]

NARRATIVE: CASE EVENT DATE: 201801
